FAERS Safety Report 16873406 (Version 2)
Quarter: 2020Q1

REPORT INFORMATION
  Report Type: Spontaneous
  Country: US (occurrence: US)
  Receive Date: 20191001
  Receipt Date: 20200124
  Transmission Date: 20200409
  Serious: Yes (Other)
  Sender: FDA-Public Use
  Company Number: US-PFIZER INC-2019420854

PATIENT
  Age: 66 Year
  Sex: Female
  Weight: 72.57 kg

DRUGS (5)
  1. CYCLOBENZAPRINE. [Concomitant]
     Active Substance: CYCLOBENZAPRINE
     Dosage: UNK
  2. METAXALONE. [Concomitant]
     Active Substance: METAXALONE
     Indication: BACK PAIN
  3. METAXALONE. [Concomitant]
     Active Substance: METAXALONE
     Indication: INTERVERTEBRAL DISC DEGENERATION
     Dosage: 800 MG, 3X/DAY
     Route: 048
     Dates: start: 2014
  4. METAXALONE. [Concomitant]
     Active Substance: METAXALONE
     Indication: FIBROMYALGIA
  5. SKELAXIN [Suspect]
     Active Substance: METAXALONE
     Dosage: UNK

REACTIONS (4)
  - Rheumatoid arthritis [Not Recovered/Not Resolved]
  - Memory impairment [Unknown]
  - Malaise [Unknown]
  - Head discomfort [Unknown]

NARRATIVE: CASE EVENT DATE: 201906
